FAERS Safety Report 21742259 (Version 1)
Quarter: 2022Q4

REPORT INFORMATION
  Report Type: Spontaneous
  Country: US (occurrence: None)
  Receive Date: 20221216
  Receipt Date: 20221216
  Transmission Date: 20230112
  Serious: Yes (Hospitalization)
  Sender: FDA-Public Use
  Company Number: None

PATIENT
  Age: 56 Year
  Sex: Male
  Weight: 72.6 kg

DRUGS (8)
  1. AVELUMAB [Suspect]
     Active Substance: AVELUMAB
     Dosage: OTHER ROUTE : 800 MG ON 11/17 AND 800MG ON 12/2;?
     Route: 050
     Dates: end: 20221202
  2. CELECOXIB [Concomitant]
     Active Substance: CELECOXIB
  3. DULOXETINE [Concomitant]
     Active Substance: DULOXETINE
  4. LORAZEPAM [Concomitant]
     Active Substance: LORAZEPAM
  5. METHADONE [Concomitant]
     Active Substance: METHADONE HYDROCHLORIDE
  6. OXYCODONE [Concomitant]
     Active Substance: OXYCODONE
  7. PREGABALIN [Concomitant]
     Active Substance: PREGABALIN
  8. TIZANIDINE [Concomitant]
     Active Substance: TIZANIDINE

REACTIONS (6)
  - Cerebral ischaemia [None]
  - Facial paralysis [None]
  - Asthenia [None]
  - Dizziness [None]
  - Confusional state [None]
  - Blood pressure systolic decreased [None]

NARRATIVE: CASE EVENT DATE: 20221205
